FAERS Safety Report 21789878 (Version 1)
Quarter: 2022Q4

REPORT INFORMATION
  Report Type: Spontaneous
  Country: BE (occurrence: BE)
  Receive Date: 20221228
  Receipt Date: 20221228
  Transmission Date: 20230113
  Serious: Yes (Life-Threatening, Hospitalization, Disabling)
  Sender: FDA-Public Use
  Company Number: None

PATIENT
  Age: 71 Year
  Sex: Male
  Weight: 72 kg

DRUGS (10)
  1. MYLOTARG [Suspect]
     Active Substance: GEMTUZUMAB OZOGAMICIN
     Indication: Myelodysplastic syndrome
     Route: 042
     Dates: start: 20210427, end: 20210503
  2. SULFAMETHOXAZOLE\TRIMETHOPRIM [Concomitant]
     Active Substance: SULFAMETHOXAZOLE\TRIMETHOPRIM
     Dates: start: 20210514, end: 20210517
  3. LERCANIDIPINE HYDROCHLORIDE [Concomitant]
     Active Substance: LERCANIDIPINE HYDROCHLORIDE
  4. VANCOMYCIN [Concomitant]
     Active Substance: VANCOMYCIN
     Dates: start: 20210510, end: 20210514
  5. ACYCLOVIR [Concomitant]
     Active Substance: ACYCLOVIR
  6. URSODIOL [Concomitant]
     Active Substance: URSODIOL
  7. BUMETANIDE [Concomitant]
     Active Substance: BUMETANIDE
  8. AMBISOME [Concomitant]
     Active Substance: AMPHOTERICIN B
     Dates: start: 20210510
  9. MEROPENEM [Concomitant]
     Active Substance: MEROPENEM
     Dates: start: 20210510, end: 20210518
  10. ALLOPURINOL [Concomitant]
     Active Substance: ALLOPURINOL

REACTIONS (4)
  - Pulmonary vein occlusion [Recovered/Resolved with Sequelae]
  - Pulmonary arterial hypertension [Recovered/Resolved with Sequelae]
  - Hypoxia [Recovered/Resolved with Sequelae]
  - Pleural effusion [Recovered/Resolved with Sequelae]

NARRATIVE: CASE EVENT DATE: 20210514
